FAERS Safety Report 6300502-7 (Version None)
Quarter: 2009Q3

REPORT INFORMATION
  Report Type: 
  Country: None (occurrence: None)
  Receive Date: 20090806
  Receipt Date: 20090105
  Transmission Date: 20100115
  Serious: No
  Sender: FDA-Public Use
  Company Number: US-ABBOTT-09P-163-0495939-00

PATIENT
  Sex: Female

DRUGS (3)
  1. DEPAKOTE ER [Suspect]
     Indication: BIPOLAR DISORDER
     Dosage: 2 TABS IN AFTERNOON AND 3 TABS AT BEDTIME
     Route: 048
     Dates: start: 19950101
  2. KLONOPIN [Suspect]
     Indication: BIPOLAR DISORDER
     Route: 048
     Dates: start: 19940101
  3. SEROQUEL [Suspect]
     Indication: BIPOLAR DISORDER
     Route: 048
     Dates: start: 19960101, end: 20090104

REACTIONS (4)
  - CHEST DISCOMFORT [None]
  - HYPERSENSITIVITY [None]
  - PRURITUS [None]
  - SWELLING FACE [None]
